FAERS Safety Report 5043204-X (Version None)
Quarter: 2006Q3

REPORT INFORMATION
  Report Type: 
  Country: None (occurrence: None)
  Receive Date: 20060703
  Receipt Date: 20060703
  Transmission Date: 20061208
  Serious: Yes (Hospitalization)
  Sender: FDA-Public Use
  Company Number: None

PATIENT
  Age: 77 Year
  Sex: Male

DRUGS (1)
  1. TARCEVA [Suspect]
     Indication: PROSTATE CANCER
     Dosage: 150 MG QD
     Dates: start: 20060426, end: 20060614

REACTIONS (6)
  - BLADDER DISORDER [None]
  - DEHYDRATION [None]
  - HAEMATURIA [None]
  - PROSTATIC DISORDER [None]
  - PROSTATIC HAEMORRHAGE [None]
  - THROMBOSIS [None]
